FAERS Safety Report 7716018-7 (Version None)
Quarter: 2011Q3

REPORT INFORMATION
  Report Type: 
  Country: None (occurrence: None)
  Receive Date: 20110829
  Receipt Date: 20110824
  Transmission Date: 20111222
  Serious: Yes (Hospitalization, Other)
  Sender: FDA-Public Use
  Company Number: US-PFIZER INC-2011197026

PATIENT
  Sex: Male
  Weight: 102.49 kg

DRUGS (3)
  1. DILANTIN-125 [Suspect]
     Indication: CONVULSION
     Dosage: UNK
  2. PHENOBARBITAL TAB [Suspect]
     Indication: CONVULSION
     Dosage: UNK
     Route: 048
  3. PHENYTOIN SODIUM [Suspect]
     Indication: CONVULSION
     Dosage: 100 MG, 4X/DAY
     Route: 048

REACTIONS (3)
  - MALABSORPTION [None]
  - DRUG INEFFECTIVE [None]
  - CONVULSION [None]
